FAERS Safety Report 25404310 (Version 1)
Quarter: 2025Q2

REPORT INFORMATION
  Report Type: Spontaneous
  Country: US (occurrence: US)
  Receive Date: 20250606
  Receipt Date: 20250606
  Transmission Date: 20250716
  Serious: Yes (Other)
  Sender: COOPERSURGICAL
  Company Number: US-COOPERSURGICAL, INC.-2025CPS004523

PATIENT
  Age: 25 Year
  Sex: Female
  Weight: 94.331 kg

DRUGS (1)
  1. PARAGARD T 380A [Suspect]
     Active Substance: COPPER
     Indication: Contraception
     Route: 015
     Dates: start: 20160826

REACTIONS (8)
  - Reproductive complication associated with device [Unknown]
  - Abortion spontaneous [Recovered/Resolved]
  - Infertility female [Unknown]
  - Complication of device removal [Recovered/Resolved]
  - Uterine perforation [Unknown]
  - Emotional distress [Recovered/Resolved]
  - Anxiety [Unknown]
  - Reproductive tract disorder [Unknown]

NARRATIVE: CASE EVENT DATE: 20170703
